FAERS Safety Report 24894496 (Version 3)
Quarter: 2025Q1

REPORT INFORMATION
  Report Type: Report from Study
  Country: US (occurrence: US)
  Receive Date: 20250128
  Receipt Date: 20250317
  Transmission Date: 20250409
  Serious: Yes (Hospitalization)
  Sender: UCB
  Company Number: US-UCBSA-2025004595

PATIENT
  Age: 44 Year
  Sex: Female

DRUGS (1)
  1. ROZANOLIXIZUMAB [Suspect]
     Active Substance: ROZANOLIXIZUMAB
     Indication: Myasthenia gravis
     Dosage: 560MG/4ML VIAL WEEKLY
     Route: 058
     Dates: start: 20250108

REACTIONS (1)
  - Myasthenia gravis [Recovered/Resolved with Sequelae]

NARRATIVE: CASE EVENT DATE: 20250108
